FAERS Safety Report 5579500-7 (Version None)
Quarter: 2008Q1

REPORT INFORMATION
  Report Type: 
  Country: None (occurrence: None)
  Receive Date: 20080102
  Receipt Date: 20071218
  Transmission Date: 20080703
  Serious: Yes (Other)
  Sender: FDA-Public Use
  Company Number: US-AMGEN-KDL248033

PATIENT
  Sex: Male
  Weight: 79.5 kg

DRUGS (6)
  1. EPOGEN [Suspect]
     Indication: RENAL FAILURE CHRONIC
     Route: 058
     Dates: start: 20061101
  2. DIOVAN [Concomitant]
  3. ZOCOR [Concomitant]
  4. CELEXA [Concomitant]
  5. FOLTX [Concomitant]
  6. BLOOD CELLS, PACKED HUMAN [Concomitant]
     Dates: start: 20070701

REACTIONS (7)
  - ANTI-ERYTHROPOIETIN ANTIBODY POSITIVE [None]
  - APLASIA PURE RED CELL [None]
  - FLANK PAIN [None]
  - HAEMORRHAGE FOETAL [None]
  - IRON DEFICIENCY [None]
  - NORMOCHROMIC NORMOCYTIC ANAEMIA [None]
  - PNEUMONIA PRIMARY ATYPICAL [None]
